FAERS Safety Report 10108998 (Version 2)
Quarter: 2014Q2

REPORT INFORMATION
  Report Type: Spontaneous
  Country: IN (occurrence: IN)
  Receive Date: 20140425
  Receipt Date: 20140505
  Transmission Date: 20141212
  Serious: Yes (Other)
  Sender: FDA-Public Use
  Company Number: IN-ROCHE-1383458

PATIENT
  Age: 67 Year
  Sex: Male

DRUGS (1)
  1. XELODA [Suspect]
     Indication: RECTAL CANCER
     Route: 048

REACTIONS (1)
  - Toxic epidermal necrolysis [Unknown]
